FAERS Safety Report 4408628-X (Version None)
Quarter: 2004Q3

REPORT INFORMATION
  Report Type: 
  Country: None (occurrence: None)
  Receive Date: 20040723
  Receipt Date: 20040713
  Transmission Date: 20050211
  Serious: Yes (Hospitalization, Other)
  Sender: FDA-Public Use
  Company Number: L04-USA-03127-01

PATIENT
  Age: 14 Year
  Sex: Male

DRUGS (8)
  1. CITALOPRAM [Suspect]
     Indication: DEPRESSIVE SYMPTOM
     Dosage: 60 MG QD
  2. CITALOPRAM [Suspect]
     Indication: OBSESSIVE-COMPULSIVE DISORDER
     Dosage: 60 MG QD
  3. CITALOPRAM [Suspect]
     Indication: DEPRESSIVE SYMPTOM
     Dosage: 40 MG QD
  4. CITALOPRAM [Suspect]
     Indication: OBSESSIVE-COMPULSIVE DISORDER
     Dosage: 40 MG QD
  5. CITALOPRAM [Suspect]
     Indication: DEPRESSIVE SYMPTOM
  6. CITALOPRAM [Suspect]
     Indication: OBSESSIVE-COMPULSIVE DISORDER
  7. CITALOPRAM [Suspect]
     Indication: DEPRESSIVE SYMPTOM
     Dosage: 40 MG QD
  8. CITALOPRAM [Suspect]
     Indication: OBSESSIVE-COMPULSIVE DISORDER
     Dosage: 40 MG QD

REACTIONS (12)
  - ANHEDONIA [None]
  - CONDITION AGGRAVATED [None]
  - DELUSION [None]
  - DEPRESSED MOOD [None]
  - ENERGY INCREASED [None]
  - HOMICIDAL IDEATION [None]
  - IRRITABILITY [None]
  - OBSESSIVE THOUGHTS [None]
  - PSYCHOTIC DISORDER [None]
  - SLEEP DISORDER [None]
  - SOCIAL AVOIDANT BEHAVIOUR [None]
  - THOUGHT INSERTION [None]
